FAERS Safety Report 12507819 (Version 2)
Quarter: 2018Q2

REPORT INFORMATION
  Report Type: Spontaneous
  Country: US (occurrence: US)
  Receive Date: 20160629
  Receipt Date: 20180511
  Transmission Date: 20180711
  Serious: No
  Sender: FDA-Public Use
  Company Number: US-PFIZER INC-2016303750

PATIENT
  Age: 59 Year
  Sex: Female

DRUGS (3)
  1. BACTRIM [Suspect]
     Active Substance: SULFAMETHOXAZOLE\TRIMETHOPRIM
     Dosage: UNK
  2. ZOLOFT [Suspect]
     Active Substance: SERTRALINE HYDROCHLORIDE
     Dosage: UNK
  3. PENICILLIN /00000901/ [Suspect]
     Active Substance: PENICILLIN G
     Dosage: UNK

REACTIONS (1)
  - Drug hypersensitivity [Unknown]
